FAERS Safety Report 23891002 (Version 1)
Quarter: 2024Q2

REPORT INFORMATION
  Report Type: Other
  Country: US (occurrence: US)
  Receive Date: 20240523
  Receipt Date: 20240523
  Transmission Date: 20240716
  Serious: No
  Sender: FDA-Public Use
  Company Number: US-SCIEGENP-2024SCSPO00265

PATIENT

DRUGS (1)
  1. BUPROPION HYDROCHLORIDE [Suspect]
     Active Substance: BUPROPION HYDROCHLORIDE
     Indication: Product used for unknown indication
     Route: 065

REACTIONS (6)
  - Disturbance in attention [Recovered/Resolved]
  - Apathy [Recovered/Resolved]
  - Therapeutic response changed [Unknown]
  - Depression [Recovered/Resolved]
  - Product odour abnormal [Unknown]
  - Product substitution issue [Unknown]
